FAERS Safety Report 9849782 (Version 1)
Quarter: 2013Q4

REPORT INFORMATION
  Report Type: Spontaneous
  Country: US (occurrence: None)
  Receive Date: 20131226
  Receipt Date: 20131226
  Transmission Date: 20140711
  Serious: Yes (Disabling)
  Sender: FDA-Public Use
  Company Number: PHEH2013US002228

PATIENT
  Age: 62 Year
  Sex: Female
  Weight: 113 kg

DRUGS (4)
  1. ZOMETA (ZOLEDRONATE) SOLUTION FOR INJECTION [Suspect]
     Indication: METASTASES TO BONE
     Route: 042
     Dates: start: 20130109
  2. TARCEVA (ERLOTINIB HYDROCHLORIDE) [Concomitant]
  3. VICODIN (HYDROCODONE BITARTRATE, PARACETAMOL) [Concomitant]
  4. NEUTRA-PHOS (POTASSIUM PHOSPHATE DIBASIC, POTASSIUM PHOSPHATE MONOBASIC, SODIUM PHOSPHATE DIBASIC, SODIUM PHOSPHATE MONOBASIC (ANHYDRATE)) [Concomitant]

REACTIONS (5)
  - Bone pain [None]
  - Blood urea increased [None]
  - Creatinine renal clearance increased [None]
  - Blood magnesium decreased [None]
  - Myalgia [None]
